FAERS Safety Report 20548019 (Version 2)
Quarter: 2022Q1

REPORT INFORMATION
  Report Type: Spontaneous
  Country: US (occurrence: US)
  Receive Date: 20220303
  Receipt Date: 20220309
  Transmission Date: 20220423
  Serious: No
  Sender: FDA-Public Use
  Company Number: US-BAUSCH-BL-2022-005623

PATIENT
  Age: 49 Year
  Sex: Female

DRUGS (2)
  1. TRETINOIN [Suspect]
     Active Substance: TRETINOIN
     Indication: Product used for unknown indication
     Route: 065
  2. HYDROQUINONE [Suspect]
     Active Substance: HYDROQUINONE
     Indication: Product used for unknown indication
     Dosage: TRAIL KIT N/O
     Route: 065

REACTIONS (2)
  - Asthma [Unknown]
  - Adverse reaction [Unknown]
